FAERS Safety Report 7978216-7 (Version None)
Quarter: 2011Q4

REPORT INFORMATION
  Report Type: 
  Country: None (occurrence: None)
  Receive Date: 20111208
  Receipt Date: 20111201
  Transmission Date: 20120403
  Serious: Yes (Hospitalization, Other)
  Sender: FDA-Public Use
  Company Number: WAES 1104USA00331

PATIENT
  Age: 79 Year
  Sex: Male

DRUGS (8)
  1. DECADRON [Suspect]
     Indication: MULTIPLE MYELOMA
     Dosage: 20 MG/DAILY PO ; 20 MG
     Route: 048
     Dates: start: 20090127
  2. DECADRON [Suspect]
     Indication: MULTIPLE MYELOMA
     Dosage: 20 MG/DAILY PO ; 20 MG
     Route: 048
     Dates: start: 20090227
  3. MOVIPREP [Concomitant]
  4. GRANISETRON [Concomitant]
  5. ISOSORBIDE MONONITRATE [Concomitant]
  6. VELCADE [Suspect]
     Indication: MULTIPLE MYELOMA
     Dosage: 2.6 MG IV  ; 2.6 MG IV
     Route: 042
     Dates: start: 20090227
  7. VELCADE [Suspect]
     Indication: MULTIPLE MYELOMA
     Dosage: 2.6 MG IV  ; 2.6 MG IV
     Route: 042
     Dates: start: 20090127
  8. PREDNISOLONE [Concomitant]

REACTIONS (13)
  - DIARRHOEA [None]
  - LOWER RESPIRATORY TRACT INFECTION [None]
  - DEHYDRATION [None]
  - DUODENOGASTRIC REFLUX [None]
  - HYPONATRAEMIA [None]
  - HYPOTENSION [None]
  - ORTHOSTATIC HYPOTENSION [None]
  - HYPOXIA [None]
  - CONSTIPATION [None]
  - ABDOMINAL DISCOMFORT [None]
  - NAUSEA [None]
  - VOMITING [None]
  - INTESTINAL DILATATION [None]
